FAERS Safety Report 23806722 (Version 1)
Quarter: 2024Q2

REPORT INFORMATION
  Report Type: Spontaneous
  Country: US (occurrence: US)
  Receive Date: 20240502
  Receipt Date: 20240502
  Transmission Date: 20240716
  Serious: No
  Sender: FDA-Public Use
  Company Number: US-BRISTOL-MYERS SQUIBB COMPANY-2024-063321

PATIENT
  Age: 41 Year
  Sex: Female

DRUGS (1)
  1. LENALIDOMIDE [Suspect]
     Active Substance: LENALIDOMIDE
     Indication: Plasma cell myeloma
     Dosage: FREQUENCY ^21^
     Dates: start: 2022, end: 202404

REACTIONS (3)
  - Migraine [Unknown]
  - Muscle spasms [Unknown]
  - Chills [Unknown]

NARRATIVE: CASE EVENT DATE: 20240401
